FAERS Safety Report 4435169-6 (Version None)
Quarter: 2004Q3

REPORT INFORMATION
  Report Type: 
  Country: None (occurrence: None)
  Receive Date: 20040827
  Receipt Date: 20040813
  Transmission Date: 20050211
  Serious: Yes (Other)
  Sender: FDA-Public Use
  Company Number: US-ROCHE-377857

PATIENT
  Age: 85 Year
  Sex: Female

DRUGS (5)
  1. ROCEPHIN [Suspect]
     Indication: PNEUMONIA
     Route: 042
     Dates: start: 20040810
  2. XANAX [Concomitant]
  3. PHENERGAN HCL [Concomitant]
  4. ZITHROMAX [Concomitant]
     Indication: PNEUMONIA
  5. ZOLOFT [Concomitant]

REACTIONS (3)
  - CONFUSIONAL STATE [None]
  - HALLUCINATION [None]
  - PARANOIA [None]
